FAERS Safety Report 4304897-5 (Version None)
Quarter: 2004Q1

REPORT INFORMATION
  Report Type: 
  Country: None (occurrence: None)
  Receive Date: 20040226
  Receipt Date: 20040108
  Transmission Date: 20041129
  Serious: No
  Sender: FDA-Public Use
  Company Number: US-GLAXOSMITHKLINE-A0492006A

PATIENT
  Age: 54 Year
  Sex: Female

DRUGS (3)
  1. WELLBUTRIN [Suspect]
     Indication: DEPRESSION
     Dosage: 300MG PER DAY
     Route: 048
     Dates: start: 20031101
  2. PROZAC [Concomitant]
  3. PROVIGIL [Concomitant]

REACTIONS (4)
  - DIARRHOEA [None]
  - DYSURIA [None]
  - INCONTINENCE [None]
  - MICTURITION URGENCY [None]
